FAERS Safety Report 4744870-6 (Version None)
Quarter: 2005Q3

REPORT INFORMATION
  Report Type: 
  Country: None (occurrence: None)
  Receive Date: 20050815
  Receipt Date: 20050812
  Transmission Date: 20060218
  Serious: Yes (Hospitalization)
  Sender: FDA-Public Use
  Company Number: B0390506A

PATIENT
  Age: 41 Year
  Sex: Male

DRUGS (3)
  1. CLAMOXYL [Suspect]
     Indication: GASTRODUODENAL ULCER
     Route: 048
     Dates: start: 20050620, end: 20050620
  2. OMEPRAZOLE [Suspect]
     Indication: GASTRODUODENAL ULCER
     Route: 048
     Dates: start: 20050620, end: 20050620
  3. ZECLAR [Suspect]
     Indication: GASTRODUODENAL ULCER
     Route: 048
     Dates: start: 20050620, end: 20050620

REACTIONS (4)
  - CHOLESTASIS [None]
  - HEPATIC FUNCTION ABNORMAL [None]
  - HEPATOCELLULAR DAMAGE [None]
  - MYALGIA [None]
